FAERS Safety Report 13229981 (Version 1)
Quarter: 2017Q1

REPORT INFORMATION
  Report Type: Spontaneous
  Country: US (occurrence: US)
  Receive Date: 20170214
  Receipt Date: 20170214
  Transmission Date: 20170428
  Serious: Yes (Life-Threatening, Hospitalization, Disabling, Other)
  Sender: FDA-Public Use
  Company Number: None

PATIENT
  Age: 28 Year
  Sex: Female
  Weight: 44 kg

DRUGS (2)
  1. ADDERALL XR [Concomitant]
     Active Substance: AMPHETAMINE ASPARTATE\AMPHETAMINE SULFATE\DEXTROAMPHETAMINE SACCHARATE\DEXTROAMPHETAMINE SULFATE
  2. PARAGARD T 380A [Suspect]
     Active Substance: COPPER
     Dates: start: 20140923, end: 20150414

REACTIONS (11)
  - Loss of consciousness [None]
  - Hyperhidrosis [None]
  - Impaired work ability [None]
  - Dyspnoea [None]
  - Anxiety [None]
  - Sensory disturbance [None]
  - Rash [None]
  - Feeling abnormal [None]
  - Paraesthesia [None]
  - Heart rate increased [None]
  - Asthenia [None]

NARRATIVE: CASE EVENT DATE: 20151117
